FAERS Safety Report 25852733 (Version 1)
Quarter: 2025Q3

REPORT INFORMATION
  Report Type: Spontaneous
  Country: US (occurrence: US)
  Receive Date: 20250926
  Receipt Date: 20250926
  Transmission Date: 20251020
  Serious: No
  Sender: APOTEX
  Company Number: US-APOTEX-2025AP030355

PATIENT
  Age: 30 Year
  Sex: Female

DRUGS (5)
  1. GUANFACINE [Suspect]
     Active Substance: GUANFACINE
     Indication: Attention deficit hyperactivity disorder
     Dosage: 1 DOSAGE FORM, QD
     Route: 048
     Dates: start: 20250912
  2. LAMICTAL [Concomitant]
     Active Substance: LAMOTRIGINE
     Indication: Bipolar I disorder
     Dosage: 1 DOSAGE FORM, QD
     Route: 065
  3. LEUCOVORIN [Concomitant]
     Active Substance: LEUCOVORIN\LEUCOVORIN CALCIUM
     Indication: Attention deficit hyperactivity disorder
     Dosage: 25 MILLIGRAM, BID
     Route: 065
  4. AUVELITY [Concomitant]
     Active Substance: BUPROPION HYDROCHLORIDE\DEXTROMETHORPHAN HYDROBROMIDE
     Indication: Depression
     Dosage: 45 MILLIGRAM, QD
     Route: 065
  5. EPIPEN [Concomitant]
     Active Substance: EPINEPHRINE
     Indication: Anaphylactic reaction
     Route: 065

REACTIONS (4)
  - Condition aggravated [Not Recovered/Not Resolved]
  - Product substitution issue [Unknown]
  - Diarrhoea [Not Recovered/Not Resolved]
  - Nausea [Not Recovered/Not Resolved]

NARRATIVE: CASE EVENT DATE: 20250901
